FAERS Safety Report 5343854-7 (Version None)
Quarter: 2007Q2

REPORT INFORMATION
  Report Type: 
  Country: None (occurrence: None)
  Receive Date: 20070604
  Receipt Date: 20070525
  Transmission Date: 20071010
  Serious: Yes (Hospitalization)
  Sender: FDA-Public Use
  Company Number: HQWYE400029MAY07

PATIENT
  Sex: Female
  Weight: 116 kg

DRUGS (3)
  1. EFFEXOR XR [Suspect]
     Indication: DEPRESSION
     Route: 048
  2. SEROQUEL [Concomitant]
     Indication: SLEEP DISORDER
  3. SEROQUEL [Concomitant]
     Indication: DEPRESSION

REACTIONS (4)
  - ABDOMINAL PAIN UPPER [None]
  - DYSURIA [None]
  - NEUROGENIC BLADDER [None]
  - URINARY HESITATION [None]
